FAERS Safety Report 20725225 (Version 2)
Quarter: 2022Q2

REPORT INFORMATION
  Report Type: Spontaneous
  Country: ES (occurrence: ES)
  Receive Date: 20220419
  Receipt Date: 20220422
  Transmission Date: 20220720
  Serious: Yes (Other)
  Sender: FDA-Public Use
  Company Number: ES-NOVARTISPH-NVSC2022ES083882

PATIENT
  Age: 65 Year
  Sex: Male

DRUGS (2)
  1. PAZOPANIB [Suspect]
     Active Substance: PAZOPANIB
     Indication: Soft tissue sarcoma
     Dosage: 800 MG, QD
     Route: 065
     Dates: start: 202003
  2. PAZOPANIB [Suspect]
     Active Substance: PAZOPANIB
     Indication: Metastases to lung
     Dosage: 600 MG, QD
     Route: 065
     Dates: start: 2020, end: 2020

REACTIONS (4)
  - Gastrointestinal toxicity [Unknown]
  - Metastases to lung [Unknown]
  - Skin hypopigmentation [Not Recovered/Not Resolved]
  - Capillary disorder [Not Recovered/Not Resolved]

NARRATIVE: CASE EVENT DATE: 20200101
